FAERS Safety Report 6646471-1 (Version None)
Quarter: 2010Q1

REPORT INFORMATION
  Report Type: 
  Country: None (occurrence: None)
  Receive Date: 20100323
  Receipt Date: 20100311
  Transmission Date: 20100710
  Serious: Yes (Congenital Anomaly)
  Sender: FDA-Public Use
  Company Number: GB-WATSON-2010-03224

PATIENT

DRUGS (3)
  1. LAMOTRIGINE [Suspect]
     Indication: EPILEPSY
     Dosage: 400 MG, BID
     Route: 064
  2. GABAPENTIN [Suspect]
     Indication: EPILEPSY
     Dosage: 1200 MG, BID
     Route: 064
  3. KEPPRA [Suspect]
     Indication: EPILEPSY
     Dosage: 2 G, BID
     Route: 064

REACTIONS (1)
  - TALIPES [None]
